FAERS Safety Report 16792207 (Version 1)
Quarter: 2019Q3

REPORT INFORMATION
  Report Type: Spontaneous
  Country: ES (occurrence: ES)
  Receive Date: 20190910
  Receipt Date: 20190910
  Transmission Date: 20191005
  Serious: Yes (Death)
  Sender: FDA-Public Use
  Company Number: ES-MYLANLABS-2019M1084702

PATIENT
  Age: 60 Year
  Sex: Male
  Weight: 51.9 kg

DRUGS (1)
  1. LEVOFLOXACIN. [Suspect]
     Active Substance: LEVOFLOXACIN
     Indication: ACUTE RESPIRATORY FAILURE
     Dosage: 500 MILLIGRAM, QD (500 MG/24 HORAS DURANTE 7 D?AS)
     Route: 048
     Dates: start: 20190408

REACTIONS (1)
  - Aortic aneurysm [Fatal]

NARRATIVE: CASE EVENT DATE: 20190411
